FAERS Safety Report 7828489-6 (Version None)
Quarter: 2011Q4

REPORT INFORMATION
  Report Type: 
  Country: None (occurrence: None)
  Receive Date: 20111020
  Receipt Date: 20111005
  Transmission Date: 20120403
  Serious: Yes (Hospitalization)
  Sender: FDA-Public Use
  Company Number: US-ENDO PHARMACEUTICALS INC.-NUBN20110002

PATIENT
  Age: 54 Year
  Sex: Male

DRUGS (9)
  1. RAMIPRIL [Concomitant]
     Indication: BLOOD PRESSURE
     Route: 065
  2. KAPSOVIT [Concomitant]
     Indication: SUPPLEMENTATION THERAPY
     Dosage: UNK
     Route: 065
  3. MILK THISTLE [Concomitant]
     Indication: SUPPLEMENTATION THERAPY
     Dosage: UNK
     Route: 048
  4. ASPIRIN [Concomitant]
     Indication: PRODUCT USED FOR UNKNOWN INDICATION
     Dosage: UNK
     Route: 065
  5. HUMIRA [Suspect]
     Indication: PSORIATIC ARTHROPATHY
     Dosage: 40 MG/0.8 ML
     Dates: start: 20090106
  6. ALUDROX [Concomitant]
     Indication: PRODUCT USED FOR UNKNOWN INDICATION
     Route: 065
  7. COLECALCIFEROL [Concomitant]
     Indication: SUPPLEMENTATION THERAPY
     Route: 048
  8. NUBAIN [Suspect]
     Indication: PAIN
     Dosage: UNK
     Route: 065
     Dates: start: 20100501, end: 20100501
  9. UBIDECARENONE [Concomitant]
     Indication: SUPPLEMENTATION THERAPY
     Dosage: UNK
     Route: 048

REACTIONS (4)
  - PERIPHERAL ARTERIAL OCCLUSIVE DISEASE [None]
  - DRUG HYPERSENSITIVITY [None]
  - LOSS OF CONSCIOUSNESS [None]
  - HYPERSENSITIVITY [None]
